FAERS Safety Report 12503291 (Version 1)
Quarter: 2016Q2

REPORT INFORMATION
  Report Type: Spontaneous
  Country: US (occurrence: None)
  Receive Date: 20160627
  Receipt Date: 20160627
  Transmission Date: 20160815
  Serious: Yes (Hospitalization)
  Sender: FDA-Public Use
  Company Number: None

PATIENT
  Age: 57 Year
  Sex: Female
  Weight: 96 kg

DRUGS (1)
  1. TBO-FILGRASTIM [Suspect]
     Active Substance: TBO-FILGRASTIM
     Indication: NEUTROPENIA
     Dosage: 0.8 (480 MCG) ML EVERY DAY SQ
     Route: 058
     Dates: start: 20160310, end: 20160507

REACTIONS (6)
  - Rash erythematous [None]
  - Urticaria [None]
  - Self-medication [None]
  - Generalised oedema [None]
  - Pruritus [None]
  - Peripheral swelling [None]

NARRATIVE: CASE EVENT DATE: 20160506
